FAERS Safety Report 7715143-4 (Version None)
Quarter: 2011Q3

REPORT INFORMATION
  Report Type: 
  Country: None (occurrence: None)
  Receive Date: 20110829
  Receipt Date: 20110818
  Transmission Date: 20111222
  Serious: Yes (Hospitalization)
  Sender: FDA-Public Use
  Company Number: PHEH2011US01542

PATIENT
  Sex: Male

DRUGS (2)
  1. SANDOSTATIN LAR [Suspect]
     Dosage: 30 MG
     Route: 030
     Dates: start: 20100201, end: 20110301
  2. SANDOSTATIN LAR [Suspect]
     Dosage: 90 MG, EVERY 4 WEEKS
     Route: 030
     Dates: start: 20110301

REACTIONS (2)
  - NEUTROPENIA [None]
  - DISEASE PROGRESSION [None]
